FAERS Safety Report 7183281-3 (Version None)
Quarter: 2010Q4

REPORT INFORMATION
  Report Type: 
  Country: None (occurrence: None)
  Receive Date: 20101222
  Receipt Date: 20100615
  Transmission Date: 20110411
  Serious: No
  Sender: FDA-Public Use
  Company Number: A0865290A

PATIENT
  Age: 60 Year
  Sex: Male

DRUGS (2)
  1. FLUTICASONE PROPIONATE [Suspect]
     Dosage: 2SPR TWICE PER DAY
     Route: 045
     Dates: start: 20100613
  2. NO CONCURRENT MEDICATION [Concomitant]

REACTIONS (3)
  - DRUG ADMINISTRATION ERROR [None]
  - NASAL DISCOMFORT [None]
  - OVERDOSE [None]
